FAERS Safety Report 6346520-4 (Version None)
Quarter: 2009Q3

REPORT INFORMATION
  Report Type: 
  Country: None (occurrence: None)
  Receive Date: 20090909
  Receipt Date: 20090827
  Transmission Date: 20100115
  Serious: Yes (Hospitalization)
  Sender: FDA-Public Use
  Company Number: FR-ELI_LILLY_AND_COMPANY-FR200906006916

PATIENT
  Age: 74 Year
  Sex: Female
  Weight: 54 kg

DRUGS (3)
  1. FORTEO [Suspect]
     Indication: OSTEOPOROSIS
     Dosage: 20 UG, DAILY (1/D)
     Route: 065
     Dates: start: 20080908
  2. LAROXYL [Concomitant]
     Dosage: 25 MG, DAILY (1/D)
     Route: 065
  3. STRESAM [Concomitant]
     Dosage: UNK, DAILY (1/D)
     Route: 065

REACTIONS (2)
  - NECK PAIN [None]
  - PELVIC FRACTURE [None]
